FAERS Safety Report 4994399-5 (Version None)
Quarter: 2006Q2

REPORT INFORMATION
  Report Type: 
  Country: None (occurrence: None)
  Receive Date: 20060503
  Receipt Date: 20060424
  Transmission Date: 20061013
  Serious: Yes (Hospitalization)
  Sender: FDA-Public Use
  Company Number: 2006-04-1661

PATIENT
  Age: 6 Month
  Sex: Male
  Weight: 8.6 kg

DRUGS (1)
  1. CELESTONE [Suspect]
     Indication: INFLUENZA
     Dates: start: 20060313

REACTIONS (7)
  - BREATH SOUNDS ABNORMAL [None]
  - EAR, NOSE AND THROAT EXAMINATION ABNORMAL [None]
  - EPIDIDYMITIS [None]
  - HAEMOGLOBIN DECREASED [None]
  - INGUINAL HERNIA [None]
  - ORCHITIS [None]
  - PLATELET COUNT INCREASED [None]
